FAERS Safety Report 5834351-0 (Version None)
Quarter: 2008Q3

REPORT INFORMATION
  Report Type: 
  Country: None (occurrence: None)
  Receive Date: 20080805
  Receipt Date: 20080724
  Transmission Date: 20090109
  Serious: Yes (Other)
  Sender: FDA-Public Use
  Company Number: NL-PFIZER INC-2008039884

PATIENT
  Age: 73 Year
  Sex: Male

DRUGS (16)
  1. PREGABALIN [Suspect]
     Indication: POST HERPETIC NEURALGIA
     Dosage: DAILY DOSE:150MG-FREQ:DAILY
  2. BUMETANIDE [Suspect]
     Indication: CARDIAC FAILURE CHRONIC
     Dosage: DAILY DOSE:6MG-FREQ:DAILY
  3. PHENPROCOUMON [Concomitant]
     Dosage: FREQ:DAILY AS NEEDED
  4. DIGOXIN [Concomitant]
     Indication: CARDIAC FAILURE CHRONIC
     Dosage: DAILY DOSE:.125MG-FREQ:DAILY
  5. PERINDOPRIL ERBUMINE [Concomitant]
     Indication: CARDIAC FAILURE CHRONIC
     Dosage: DAILY DOSE:4MG-FREQ:DAILY
  6. SPIRONOLACTONE [Concomitant]
     Indication: CARDIAC FAILURE CHRONIC
     Dosage: DAILY DOSE:50MG-FREQ:DAILY
  7. GLICLAZIDE [Concomitant]
     Indication: DIABETES MELLITUS
     Dosage: DAILY DOSE:160MG-FREQ:DAILY
  8. METFORMIN HCL [Concomitant]
     Indication: DIABETES MELLITUS
     Dosage: DAILY DOSE:1700MG-FREQ:DAILY
  9. OMEPRAZOLE [Concomitant]
     Indication: PEPTIC ULCER
     Dosage: DAILY DOSE:40MG-FREQ:DAILY
  10. ALLOPURINOL [Concomitant]
     Indication: GOUT
     Dosage: DAILY DOSE:300MG-FREQ:DAILY
  11. IPRATROPIUM BROMIDE [Concomitant]
     Indication: CHRONIC OBSTRUCTIVE PULMONARY DISEASE
  12. SALMETEROL [Concomitant]
     Indication: CHRONIC OBSTRUCTIVE PULMONARY DISEASE
  13. FLUTICASONE PROPIONATE [Concomitant]
     Indication: CHRONIC OBSTRUCTIVE PULMONARY DISEASE
  14. LACTULOSE [Concomitant]
     Indication: CONSTIPATION
     Dosage: DAILY DOSE:20CC-FREQ:DAILY
  15. COLCHICINE [Concomitant]
     Indication: GOUT
     Dosage: DAILY DOSE:1MG-FREQ:DAILY
  16. METHADONE HCL [Concomitant]
     Indication: POST HERPETIC NEURALGIA
     Dosage: DAILY DOSE:10MG-FREQ:DAILY

REACTIONS (5)
  - CARDIAC FAILURE [None]
  - DRUG INEFFECTIVE [None]
  - PAIN [None]
  - RENAL IMPAIRMENT [None]
  - SLEEP DISORDER [None]
